FAERS Safety Report 24214238 (Version 1)
Quarter: 2024Q3

REPORT INFORMATION
  Report Type: Spontaneous
  Country: US (occurrence: None)
  Receive Date: 20240815
  Receipt Date: 20240815
  Transmission Date: 20241017
  Serious: Yes (Death)
  Sender: Public
  Company Number: None

PATIENT
  Age: 19 Year
  Sex: Male

DRUGS (1)
  1. TACROLIMUS [Suspect]
     Active Substance: TACROLIMUS
     Dosage: 1 MG/ML BID ORAL
     Route: 048
     Dates: start: 20230313, end: 20231207

REACTIONS (1)
  - Death [None]

NARRATIVE: CASE EVENT DATE: 20240810
